FAERS Safety Report 8143353-3 (Version None)
Quarter: 2012Q1

REPORT INFORMATION
  Report Type: 
  Country: None (occurrence: None)
  Receive Date: 20120217
  Receipt Date: 20120215
  Transmission Date: 20120608
  Serious: Yes (Other)
  Sender: FDA-Public Use
  Company Number: US-PFIZER INC-2012041971

PATIENT
  Sex: Female
  Weight: 72.56 kg

DRUGS (6)
  1. LOSARTAN [Concomitant]
     Indication: HYPERTENSION
     Dosage: UNK
  2. METFORMIN [Concomitant]
     Dosage: 500MG DAILY
  3. LIPITOR [Suspect]
     Dosage: 40 MG, DAILY
  4. LIPITOR [Suspect]
     Dosage: 20 MG, DAILY
  5. METFORMIN [Concomitant]
     Indication: DIABETES MELLITUS
     Dosage: 1000MG TWO TIMES A DAY
  6. LIPITOR [Suspect]
     Dosage: UNK, DAILY

REACTIONS (1)
  - NEUROPATHY PERIPHERAL [None]
